FAERS Safety Report 8271981-3 (Version None)
Quarter: 2012Q2

REPORT INFORMATION
  Report Type: 
  Country: None (occurrence: None)
  Receive Date: 20120410
  Receipt Date: 20120104
  Transmission Date: 20120825
  Serious: Yes (Hospitalization, Other)
  Sender: FDA-Public Use
  Company Number: US-BAYER-2011-115493

PATIENT
  Age: 68 Year
  Sex: Female

DRUGS (9)
  1. ACCUPRIL [Concomitant]
     Indication: HYPERTENSION
     Dosage: UNK
     Dates: start: 19970101
  2. BETAPACE [Suspect]
     Indication: ATRIAL FIBRILLATION
     Dosage: 160 MG DAILY
     Dates: start: 20010401
  3. PRAVACHOL [Concomitant]
     Dosage: UNK
     Dates: start: 20100101
  4. PAXIL [Concomitant]
     Dosage: UNK
     Dates: start: 19990101
  5. VALIUM [Concomitant]
     Indication: ATRIAL FIBRILLATION
     Dosage: 5 MG, TID
     Dates: start: 19970101
  6. COUMADIN [Concomitant]
     Dosage: UNK
     Dates: start: 20010401
  7. MULTI-VITAMINS [Concomitant]
  8. SOTALOL HCL [Suspect]
     Indication: ATRIAL FIBRILLATION
     Dosage: 80 MG
     Dates: start: 20010301, end: 20010401
  9. MAG-OX [Concomitant]
     Dosage: 400 MG, UNK

REACTIONS (3)
  - ATRIAL FIBRILLATION [None]
  - OEDEMA PERIPHERAL [None]
  - VIRAL MYOCARDITIS [None]
